FAERS Safety Report 14112312 (Version 5)
Quarter: 2018Q3

REPORT INFORMATION
  Report Type: Spontaneous
  Country: US (occurrence: US)
  Receive Date: 20171020
  Receipt Date: 20180831
  Transmission Date: 20181010
  Serious: Yes (Hospitalization)
  Sender: FDA-Public Use
  Company Number: US-ACTELION-A-US2017-161309

PATIENT
  Age: 86 Year
  Sex: Female

DRUGS (25)
  1. POTASSIUM CHLORIDE. [Concomitant]
     Active Substance: POTASSIUM CHLORIDE
  2. DIAZEPAM. [Concomitant]
     Active Substance: DIAZEPAM
  3. HYDROCODONE BITARTRATE AND ACETAMINOPHEN [Concomitant]
     Active Substance: ACETAMINOPHEN\HYDROCODONE BITARTRATE
  4. ESTRADIOL. [Concomitant]
     Active Substance: ESTRADIOL
  5. CEFUROXIME. [Concomitant]
     Active Substance: CEFUROXIME
  6. NITROFURAN [Concomitant]
     Active Substance: NITROFURANTOIN
  7. MELATONIN [Concomitant]
     Active Substance: MELATONIN
  8. METOPROLOL. [Concomitant]
     Active Substance: METOPROLOL
  9. TIMOLOL. [Concomitant]
     Active Substance: TIMOLOL
  10. DOK [Concomitant]
     Active Substance: DOCUSATE SODIUM
  11. CEPHALEXIN. [Concomitant]
     Active Substance: CEPHALEXIN
  12. OMEPRAZOLE. [Concomitant]
     Active Substance: OMEPRAZOLE
  13. LEVOTHYROXIN [Concomitant]
     Active Substance: LEVOTHYROXINE
  14. POLYETHYLENE GLYCOL [Concomitant]
     Active Substance: POLYETHYLENE GLYCOLS
  15. ADCIRCA [Concomitant]
     Active Substance: TADALAFIL
     Dosage: 40 MG, QD
     Route: 048
     Dates: start: 20171115
  16. BENZONATATE. [Concomitant]
     Active Substance: BENZONATATE
  17. AZITHROMYCIN ANHYDROUS. [Concomitant]
     Active Substance: AZITHROMYCIN ANHYDROUS
  18. MIRTAZAPINE. [Concomitant]
     Active Substance: MIRTAZAPINE
  19. MOMETASONE [Concomitant]
     Active Substance: MOMETASONE
  20. SIMVASTATIN. [Concomitant]
     Active Substance: SIMVASTATIN
  21. FUROSEMIDE. [Concomitant]
     Active Substance: FUROSEMIDE
  22. SULFAMETHOXAZOLE AND TRIMETHOPRIM [Concomitant]
     Active Substance: SULFAMETHOXAZOLE\TRIMETHOPRIM
  23. CIPROFLOXACIN. [Concomitant]
     Active Substance: CIPROFLOXACIN
  24. OPSUMIT [Suspect]
     Active Substance: MACITENTAN
     Indication: PULMONARY ARTERIAL HYPERTENSION
     Dosage: 10 MG, QD
     Route: 048
     Dates: start: 20151008
  25. FLUTICASONE. [Concomitant]
     Active Substance: FLUTICASONE

REACTIONS (6)
  - Cystitis [Unknown]
  - Pneumonia [Recovered/Resolved]
  - Headache [Unknown]
  - Urinary tract infection [Unknown]
  - Upper respiratory tract infection [Unknown]
  - Nasal congestion [Unknown]

NARRATIVE: CASE EVENT DATE: 20180605
